FAERS Safety Report 11442041 (Version 1)
Quarter: 2015Q3

REPORT INFORMATION
  Report Type: Spontaneous
  Country: US (occurrence: US)
  Receive Date: 20150901
  Receipt Date: 20150901
  Transmission Date: 20151125
  Serious: No
  Sender: FDA-Public Use
  Company Number: US-PFIZER INC-2015276096

PATIENT
  Age: 83 Year
  Sex: Female

DRUGS (7)
  1. OXYBUTYNIN [Suspect]
     Active Substance: OXYBUTYNIN
     Dosage: UNK
  2. RANEXA [Suspect]
     Active Substance: RANOLAZINE
     Indication: GASTROINTESTINAL DISORDER
     Dosage: UNK
  3. TORSEMIDE. [Suspect]
     Active Substance: TORSEMIDE
     Dosage: 5 MG, UNK
  4. SPIRONOLACTONE. [Suspect]
     Active Substance: SPIRONOLACTONE
     Dosage: 25 MG, UNK
  5. ALLOPURINOL. [Suspect]
     Active Substance: ALLOPURINOL
     Dosage: 100 MG, UNK
  6. ISOSORBIDE. [Suspect]
     Active Substance: ISOSORBIDE
     Dosage: 30 MG, UNK
  7. METHENAMINE HIPPURATE. [Suspect]
     Active Substance: METHENAMINE HIPPURATE
     Dosage: 1 G, UNK

REACTIONS (1)
  - Decreased appetite [Unknown]
